FAERS Safety Report 7915234-9 (Version None)
Quarter: 2011Q4

REPORT INFORMATION
  Report Type: 
  Country: None (occurrence: None)
  Receive Date: 20111115
  Receipt Date: 20111107
  Transmission Date: 20120403
  Serious: Yes (Hospitalization, Other)
  Sender: FDA-Public Use
  Company Number: PL-ABBOTT-11P-129-0872408-00

PATIENT
  Age: 23 Year
  Sex: Female

DRUGS (9)
  1. IBUPROFEN [Interacting]
     Indication: LYMPHADENOPATHY
  2. ACETAMINOPHEN [Interacting]
     Indication: INFLUENZA LIKE ILLNESS
  3. ACETAMINOPHEN [Interacting]
     Indication: GASTROENTERITIS
  4. IBUPROFEN [Interacting]
     Indication: GASTROENTERITIS
  5. CLARITHROMYCIN [Suspect]
     Indication: INFLUENZA LIKE ILLNESS
  6. CLARITHROMYCIN [Interacting]
     Indication: LYMPHADENOPATHY
  7. ACETAMINOPHEN [Interacting]
     Indication: LYMPHADENOPATHY
  8. CLARITHROMYCIN [Interacting]
     Indication: GASTROENTERITIS
  9. IBUPROFEN [Interacting]
     Indication: INFLUENZA LIKE ILLNESS

REACTIONS (5)
  - RESPIRATORY FAILURE [None]
  - PNEUMONIA [None]
  - ACUTE HEPATIC FAILURE [None]
  - DRUG INTERACTION [None]
  - DERMATITIS EXFOLIATIVE [None]
